FAERS Safety Report 15614061 (Version 1)
Quarter: 2018Q4

REPORT INFORMATION
  Report Type: Report from Study
  Country: US (occurrence: US)
  Receive Date: 20181113
  Receipt Date: 20181113
  Transmission Date: 20190205
  Serious: Yes (Hospitalization)
  Sender: FDA-Public Use
  Company Number: US-GILEAD-2018-0365777

PATIENT
  Age: 78 Year
  Sex: Female

DRUGS (1)
  1. RANOLAZINE. [Suspect]
     Active Substance: RANOLAZINE
     Indication: ANGINA PECTORIS
     Dosage: 500 MG, BID
     Route: 048
     Dates: start: 201711

REACTIONS (5)
  - Asthenia [Unknown]
  - Hypoacusis [Not Recovered/Not Resolved]
  - Gastrooesophageal reflux disease [Recovering/Resolving]
  - Chest pain [Recovering/Resolving]
  - Cardiovascular disorder [Recovering/Resolving]

NARRATIVE: CASE EVENT DATE: 20180906
